FAERS Safety Report 20377470 (Version 2)
Quarter: 2022Q2

REPORT INFORMATION
  Report Type: Report from Study
  Country: FR (occurrence: FR)
  Receive Date: 20220126
  Receipt Date: 20220516
  Transmission Date: 20220720
  Serious: Yes (Hospitalization, Other)
  Sender: FDA-Public Use
  Company Number: FR-TAKEDA-2022TUS004155

PATIENT
  Age: 13 Year
  Sex: Female

DRUGS (20)
  1. TEDUGLUTIDE [Suspect]
     Active Substance: TEDUGLUTIDE
     Indication: Short-bowel syndrome
     Dosage: 1.900 MILLIGRAM
     Route: 042
     Dates: start: 20200203
  2. TEDUGLUTIDE [Suspect]
     Active Substance: TEDUGLUTIDE
     Indication: Short-bowel syndrome
     Dosage: 1.900 MILLIGRAM
     Route: 042
     Dates: start: 20200203
  3. TEDUGLUTIDE [Suspect]
     Active Substance: TEDUGLUTIDE
     Indication: Short-bowel syndrome
     Dosage: 1.900 MILLIGRAM
     Route: 042
     Dates: start: 20200203
  4. TEDUGLUTIDE [Suspect]
     Active Substance: TEDUGLUTIDE
     Indication: Short-bowel syndrome
     Dosage: 1.900 MILLIGRAM
     Route: 042
     Dates: start: 20200203
  5. TEDUGLUTIDE [Suspect]
     Active Substance: TEDUGLUTIDE
     Dosage: 1.700 MILLIGRAM, QD
     Route: 042
     Dates: start: 20201209, end: 20210428
  6. TEDUGLUTIDE [Suspect]
     Active Substance: TEDUGLUTIDE
     Dosage: 1.700 MILLIGRAM, QD
     Route: 042
     Dates: start: 20201209, end: 20210428
  7. TEDUGLUTIDE [Suspect]
     Active Substance: TEDUGLUTIDE
     Dosage: 1.700 MILLIGRAM, QD
     Route: 042
     Dates: start: 20201209, end: 20210428
  8. TEDUGLUTIDE [Suspect]
     Active Substance: TEDUGLUTIDE
     Dosage: 1.700 MILLIGRAM, QD
     Route: 042
     Dates: start: 20201209, end: 20210428
  9. TEDUGLUTIDE [Suspect]
     Active Substance: TEDUGLUTIDE
     Dosage: 1.800 MILLIGRAM, QD
     Route: 042
     Dates: start: 20210429, end: 20210807
  10. TEDUGLUTIDE [Suspect]
     Active Substance: TEDUGLUTIDE
     Dosage: 1.800 MILLIGRAM, QD
     Route: 042
     Dates: start: 20210429, end: 20210807
  11. TEDUGLUTIDE [Suspect]
     Active Substance: TEDUGLUTIDE
     Dosage: 1.800 MILLIGRAM, QD
     Route: 042
     Dates: start: 20210429, end: 20210807
  12. TEDUGLUTIDE [Suspect]
     Active Substance: TEDUGLUTIDE
     Dosage: 1.800 MILLIGRAM, QD
     Route: 042
     Dates: start: 20210429, end: 20210807
  13. TEDUGLUTIDE [Suspect]
     Active Substance: TEDUGLUTIDE
     Dosage: 1.900 MILLIGRAM, QD
     Route: 042
     Dates: start: 20210808
  14. TEDUGLUTIDE [Suspect]
     Active Substance: TEDUGLUTIDE
     Dosage: 1.900 MILLIGRAM, QD
     Route: 042
     Dates: start: 20210808
  15. TEDUGLUTIDE [Suspect]
     Active Substance: TEDUGLUTIDE
     Dosage: 1.900 MILLIGRAM, QD
     Route: 042
     Dates: start: 20210808
  16. TEDUGLUTIDE [Suspect]
     Active Substance: TEDUGLUTIDE
     Dosage: 1.900 MILLIGRAM, QD
     Route: 042
     Dates: start: 20210808
  17. VANCOMYCIN [Concomitant]
     Active Substance: VANCOMYCIN
     Indication: Antibiotic therapy
     Dosage: 105 MILLIGRAM, QD
     Route: 042
     Dates: start: 20210802, end: 20210831
  18. RIFAMPIN [Concomitant]
     Active Substance: RIFAMPIN
     Indication: Antibiotic therapy
     Dosage: 540 MILLIGRAM, BID
     Route: 042
     Dates: start: 20210802, end: 20210831
  19. CYAMEMAZINE [Concomitant]
     Active Substance: CYAMEMAZINE
     Indication: Antipsychotic therapy
     Dosage: 10 GTT DROPS, BID
     Route: 048
     Dates: start: 2018
  20. VITAMIN D3 [Concomitant]
     Active Substance: CHOLECALCIFEROL
     Indication: Vitamin D deficiency
     Dosage: 1 DOSAGE FORM, Q3MONTHS
     Route: 030
     Dates: start: 2015

REACTIONS (3)
  - Salmonella sepsis [Recovered/Resolved]
  - Gastric ulcer [Recovered/Resolved]
  - Enteritis [Recovered/Resolved]

NARRATIVE: CASE EVENT DATE: 20210622
